FAERS Safety Report 25949810 (Version 1)
Quarter: 2025Q4

REPORT INFORMATION
  Report Type: Spontaneous
  Country: EU (occurrence: EU)
  Receive Date: 20251022
  Receipt Date: 20251022
  Transmission Date: 20260117
  Serious: Yes (Hospitalization, Other)
  Sender: BRISTOL-MYERS SQUIBB COMPANY
  Company Number: None

PATIENT
  Age: 77 Year
  Sex: Female
  Weight: 57.2 kg

DRUGS (20)
  1. AZACITIDINE [Suspect]
     Active Substance: AZACITIDINE
     Indication: Acute myeloid leukaemia
     Dates: start: 20250422, end: 20250514
  2. AZACITIDINE [Suspect]
     Active Substance: AZACITIDINE
     Dates: start: 20250526, end: 20250616
  3. AZACITIDINE [Suspect]
     Active Substance: AZACITIDINE
     Dates: start: 20250716, end: 20250730
  4. AZACITIDINE [Suspect]
     Active Substance: AZACITIDINE
     Dates: start: 20250828, end: 20250911
  5. VENETOCLAX [Suspect]
     Active Substance: VENETOCLAX
     Indication: Acute myeloid leukaemia
     Dosage: 75MG/M2
     Dates: start: 20250422, end: 20250430
  6. VENETOCLAX [Suspect]
     Active Substance: VENETOCLAX
     Dosage: 75MG/M2
     Dates: start: 20250526, end: 20250604
  7. VENETOCLAX [Suspect]
     Active Substance: VENETOCLAX
     Dosage: 75MG/M2
     Dates: start: 20250716, end: 20250724
  8. VENETOCLAX [Suspect]
     Active Substance: VENETOCLAX
     Dosage: 75MG/M2
     Dates: start: 20250829, end: 20250905
  9. PIPERACILLIN SODIUM\TAZOBACTAM SODIUM [Suspect]
     Active Substance: PIPERACILLIN SODIUM\TAZOBACTAM SODIUM
     Indication: Escherichia infection
     Dosage: 4G 4 TIMES A DAY EVERY 6H
     Dates: start: 20250930
  10. POSACONAZOLE [Suspect]
     Active Substance: POSACONAZOLE
     Indication: Acute myeloid leukaemia
     Dosage: EVENING
     Dates: start: 20250422
  11. POSACONAZOLE [Suspect]
     Active Substance: POSACONAZOLE
     Indication: Antifungal prophylaxis
  12. DAPTOMYCIN [Concomitant]
     Active Substance: DAPTOMYCIN
     Indication: Escherichia infection
     Dosage: AT 9 P.M.
     Dates: start: 20250930, end: 20251007
  13. VENLAFAXINE HYDROCHLORIDE [Concomitant]
     Active Substance: VENLAFAXINE HYDROCHLORIDE
     Indication: Mixed anxiety and depressive disorder
  14. LETROZOLE [Concomitant]
     Active Substance: LETROZOLE
     Indication: Intraductal proliferative breast lesion
     Dates: start: 20221213
  15. OXSYNIA 10 mg/5 mg extended-release tablet [Concomitant]
     Indication: Cancer pain
     Dosage: 1CP MORNING AND EVENING (EXTENDED-RELEASE TABLET)
  16. ZARZIO 30 MU/0.5 ml, solution for injection or for infusion in a pre-f [Concomitant]
     Indication: Neutropenia
     Dosage: TUESDAY AND THURSDAY STRENGTH: 30 MU/0.5 ML.
     Dates: end: 20250927
  17. ZARZIO 30 MU/0.5 ml, solution for injection or for infusion in a pre-f [Concomitant]
     Dosage: TUESDAY AND THURSDAY
     Dates: start: 20250927
  18. POTASSIUM CHLORIDE [Concomitant]
     Active Substance: POTASSIUM CHLORIDE
     Indication: Hypokalaemia
     Dosage: 2 MORNING, NOON AND EVENING GEL
  19. FOSAMAX [Concomitant]
     Active Substance: ALENDRONATE SODIUM
     Indication: Osteoporosis
  20. POLYETHYLENE GLYCOL 4000 [Concomitant]
     Active Substance: POLYETHYLENE GLYCOL 4000
     Indication: Constipation
     Dosage: MORNING

REACTIONS (1)
  - Hypokalaemia [Recovered/Resolved]

NARRATIVE: CASE EVENT DATE: 20250930
